FAERS Safety Report 5189791-2 (Version None)
Quarter: 2006Q4

REPORT INFORMATION
  Report Type: 
  Country: None (occurrence: None)
  Receive Date: 20061218
  Receipt Date: 20061207
  Transmission Date: 20070319
  Serious: Yes (Death)
  Sender: FDA-Public Use
  Company Number: 2006120005

PATIENT
  Age: 14 Month
  Sex: Male
  Weight: 7.6204 kg

DRUGS (2)
  1. FELBATOL [Suspect]
     Indication: INFANTILE SPASMS
     Dosage: 2 CC (3 IN 1 D)
     Dates: start: 20060522
  2. TOPAMAX [Concomitant]

REACTIONS (1)
  - BACTERAEMIA [None]
